FAERS Safety Report 9527606 (Version 1)
Quarter: 2013Q3

REPORT INFORMATION
  Report Type: Spontaneous
  Country: US (occurrence: None)
  Receive Date: 20130913
  Receipt Date: 20130913
  Transmission Date: 20140515
  Serious: Yes (Hospitalization, Other)
  Sender: FDA-Public Use
  Company Number: ACO_38251_2013

PATIENT
  Age: 48 Year
  Sex: Female

DRUGS (4)
  1. AMPYRA [Suspect]
     Route: 048
     Dates: end: 2013
  2. CYTOXAN (CYCLOPHOSPHAMIDE) [Concomitant]
  3. SOLUMEDROL (METHYPREDNISOLONE SODIUM SUCCINATE) [Concomitant]
  4. ALL OTHER THERAPEUTICS [Concomitant]

REACTIONS (4)
  - Petit mal epilepsy [None]
  - Hypoventilation [None]
  - Urinary tract infection [None]
  - Multiple sclerosis [None]
